FAERS Safety Report 10993296 (Version 4)
Quarter: 2015Q3

REPORT INFORMATION
  Report Type: Spontaneous
  Country: US (occurrence: US)
  Receive Date: 20150407
  Receipt Date: 20150728
  Transmission Date: 20151125
  Serious: No
  Sender: FDA-Public Use
  Company Number: US-AMGEN-USASP2015031379

PATIENT
  Age: 7 Month
  Sex: Male
  Weight: 8.59 kg

DRUGS (8)
  1. OMEGA-3 FATTY ACIDS [Concomitant]
     Active Substance: OMEGA-3 FATTY ACIDS
     Dosage: UNK UNK, QD
     Route: 063
     Dates: start: 201402, end: 201502
  2. ENBREL [Suspect]
     Active Substance: ETANERCEPT
     Indication: EXPOSURE DURING BREAST FEEDING
     Dosage: 50 MG, QWK
     Route: 063
     Dates: start: 20110923, end: 20150522
  3. VITAMIN D                          /00107901/ [Concomitant]
     Active Substance: ERGOCALCIFEROL
     Dosage: 6000 IU, QD
     Route: 063
     Dates: start: 201310
  4. CALCIUM [Concomitant]
     Active Substance: CALCIUM
     Dosage: 600 MG, QD
     Route: 063
     Dates: start: 201401
  5. MUPIROCIN. [Concomitant]
     Active Substance: MUPIROCIN
     Dosage: UNK
     Route: 063
     Dates: start: 20141203, end: 20150112
  6. WECESIN [Concomitant]
     Dosage: DAB, DAILY 5X
     Dates: start: 20141124, end: 20151220
  7. ACETAMINOPHEN. [Concomitant]
     Active Substance: ACETAMINOPHEN
     Indication: NASOPHARYNGITIS
     Dosage: 1.25 ML (160MG/5ML), ONCE DAILY
     Route: 048
     Dates: start: 20150405, end: 20150407
  8. RANITIDINE [Concomitant]
     Active Substance: RANITIDINE\RANITIDINE HYDROCHLORIDE
     Indication: GASTROOESOPHAGEAL REFLUX DISEASE
     Dosage: 1.25 ML, BID
     Route: 048
     Dates: start: 20141231

REACTIONS (3)
  - Breast feeding [Unknown]
  - Gastrooesophageal reflux disease [Unknown]
  - Umbilical cord around neck [Unknown]

NARRATIVE: CASE EVENT DATE: 20141124
